FAERS Safety Report 16917815 (Version 2)
Quarter: 2019Q4

REPORT INFORMATION
  Report Type: Spontaneous
  Country: FR (occurrence: FR)
  Receive Date: 20191015
  Receipt Date: 20191226
  Transmission Date: 20200122
  Serious: Yes (Hospitalization)
  Sender: FDA-Public Use
  Company Number: FR-TEVA-2019-FR-1120424

PATIENT
  Age: 49 Year
  Sex: Female

DRUGS (9)
  1. FORADIL [Concomitant]
     Active Substance: FORMOTEROL FUMARATE
  2. LEVOTHYROX [Concomitant]
     Active Substance: LEVOTHYROXINE
  3. KENZEN 8 MG, SPLIT TABLET [Concomitant]
  4. AMOXICILLINE [Suspect]
     Active Substance: AMOXICILLIN
     Indication: ASTHMA
     Route: 048
     Dates: start: 20190705, end: 20190705
  5. MIFLONIL 400 MICROGRAMS, POWDER FOR INHALATION IN CAPSULE [Concomitant]
  6. LAMICTAL [Concomitant]
     Active Substance: LAMOTRIGINE
  7. ZOLPIDEM [Concomitant]
     Active Substance: ZOLPIDEM TARTRATE
  8. PAROXETINE (CHLORHYDRATE DE) ANHYDRE [Concomitant]
     Active Substance: PAROXETINE
  9. LYSANXIA [Concomitant]
     Active Substance: PRAZEPAM

REACTIONS (8)
  - Rash erythematous [Recovered/Resolved]
  - Nausea [Recovered/Resolved]
  - Hypotension [Recovered/Resolved]
  - Malaise [Recovered/Resolved]
  - Abdominal pain upper [Recovered/Resolved]
  - Pruritus [Recovered/Resolved]
  - Dyspnoea at rest [Recovered/Resolved]
  - Loss of consciousness [Recovered/Resolved]

NARRATIVE: CASE EVENT DATE: 20190705
